FAERS Safety Report 4654827-1 (Version None)
Quarter: 2005Q2

REPORT INFORMATION
  Report Type: 
  Country: None (occurrence: None)
  Receive Date: 20050506
  Receipt Date: 20050425
  Transmission Date: 20051028
  Serious: Yes (Hospitalization)
  Sender: FDA-Public Use
  Company Number: FR-BRISTOL-MYERS SQUIBB COMPANY-12947370

PATIENT
  Age: 77 Year
  Sex: Female

DRUGS (5)
  1. COUMADIN [Suspect]
     Dosage: 2 MG TABLET (1.5 MG DAILY)
     Route: 048
     Dates: end: 20050403
  2. DAKTARIN [Concomitant]
     Dates: end: 20050403
  3. FUROSEMIDE [Concomitant]
  4. METFORMIN HCL [Concomitant]
  5. AMARYL [Concomitant]

REACTIONS (2)
  - BENIGN COLONIC NEOPLASM [None]
  - RECTAL HAEMORRHAGE [None]
